FAERS Safety Report 24424394 (Version 3)
Quarter: 2024Q4

REPORT INFORMATION
  Report Type: Spontaneous
  Country: CH (occurrence: CH)
  Receive Date: 20241010
  Receipt Date: 20241125
  Transmission Date: 20250114
  Serious: Yes (Other)
  Sender: MERCK
  Company Number: CH-009507513-2410CHE002209

PATIENT
  Age: 58 Year
  Sex: Female

DRUGS (2)
  1. KEYTRUDA [Suspect]
     Active Substance: PEMBROLIZUMAB
     Indication: Breast cancer
     Dosage: UNK
  2. KEYTRUDA [Suspect]
     Active Substance: PEMBROLIZUMAB
     Dosage: UNK

REACTIONS (18)
  - Systemic lupus erythematosus [Unknown]
  - Graft versus host disease [Unknown]
  - Muscle necrosis [Unknown]
  - Dermatomyositis [Unknown]
  - Dermatitis bullous [Unknown]
  - Colitis [Unknown]
  - Skin reaction [Unknown]
  - Wound [Recovering/Resolving]
  - Gamma-glutamyltransferase increased [Unknown]
  - Skin papilloma [Unknown]
  - Antibody test positive [Unknown]
  - Mucosal erosion [Unknown]
  - Oral lichenoid reaction [Unknown]
  - Mucosal inflammation [Unknown]
  - Lichenoid keratosis [Unknown]
  - Drug eruption [Unknown]
  - Lichen planus [Unknown]
  - Erythema [Unknown]

NARRATIVE: CASE EVENT DATE: 20240101
